FAERS Safety Report 9807323 (Version 1)
Quarter: 2014Q1

REPORT INFORMATION
  Report Type: Spontaneous
  Country: US (occurrence: US)
  Receive Date: 20140110
  Receipt Date: 20140110
  Transmission Date: 20141002
  Serious: Yes (Death)
  Sender: FDA-Public Use
  Company Number: US-BAYER-2014-001985

PATIENT
  Age: 59 Year
  Sex: Male

DRUGS (8)
  1. IBUPROFEN [Suspect]
     Route: 048
  2. DIPHENHYDRAMINE HYDROCHLORIDE [Suspect]
     Route: 048
  3. DIPHENHYDRAMINE HYDROCHLORIDE [Suspect]
  4. DIPHENHYDRAMINE HYDROCHLORIDE [Suspect]
     Route: 048
  5. ACETAMINOPHEN [Suspect]
     Route: 048
  6. GUAIFENESIN [Suspect]
     Route: 048
  7. PHENYLEPHRINE [Suspect]
     Route: 048
  8. ETHANOL [Suspect]
     Route: 048

REACTIONS (1)
  - Toxicity to various agents [Fatal]
